FAERS Safety Report 25192568 (Version 1)
Quarter: 2025Q2

REPORT INFORMATION
  Report Type: Spontaneous
  Country: US (occurrence: US)
  Receive Date: 20250414
  Receipt Date: 20250414
  Transmission Date: 20250716
  Serious: Yes (Life-Threatening, Hospitalization)
  Sender: Y-MABS THERAPEUTICS
  Company Number: US-Y-mAbs Therapeutics-2174795

PATIENT
  Age: 10 Year
  Sex: Male

DRUGS (4)
  1. DANYELZA [Suspect]
     Active Substance: NAXITAMAB-GQGK
     Indication: Neuroblastoma
     Dates: start: 20250307
  2. NOREPINEPHRINE [Concomitant]
     Active Substance: NOREPINEPHRINE
  3. DILAUDID [Concomitant]
     Active Substance: HYDROMORPHONE HYDROCHLORIDE
  4. SODIUM CHLORIDE NORMAL SALT [Concomitant]
     Active Substance: SODIUM CHLORIDE

REACTIONS (3)
  - Hypotension [Recovered/Resolved]
  - Off label use [Recovered/Resolved with Sequelae]
  - Pain [Unknown]

NARRATIVE: CASE EVENT DATE: 20250307
